FAERS Safety Report 4810877-3 (Version None)
Quarter: 2005Q4

REPORT INFORMATION
  Report Type: 
  Country: None (occurrence: None)
  Receive Date: 20051025
  Receipt Date: 20051025
  Transmission Date: 20060501
  Serious: Yes (Hospitalization)
  Sender: FDA-Public Use
  Company Number: None

PATIENT
  Age: 68 Year
  Sex: Male
  Weight: 87 kg

DRUGS (8)
  1. LISINOPRIL [Suspect]
     Indication: HYPERTENSION
     Dosage: 10MG DAILY PO
     Route: 048
     Dates: start: 20050815, end: 20050902
  2. METOPROLOL [Concomitant]
  3. ASPIRIN [Concomitant]
  4. DOCUSATE [Concomitant]
  5. MULTI-VITAMINS [Concomitant]
  6. ACETAMINOPHEN [Concomitant]
  7. LUMIGAN [Concomitant]
  8. ALPHAGAN [Concomitant]

REACTIONS (4)
  - BLOOD CREATININE INCREASED [None]
  - BRADYCARDIA [None]
  - HYPOTENSION [None]
  - SYNCOPE [None]
